FAERS Safety Report 20310335 (Version 1)
Quarter: 2022Q1

REPORT INFORMATION
  Report Type: Spontaneous
  Country: FI (occurrence: FI)
  Receive Date: 20220107
  Receipt Date: 20220107
  Transmission Date: 20220423
  Serious: Yes (Other)
  Sender: FDA-Public Use
  Company Number: FI-AMERICAN REGENT INC-2021003398

PATIENT
  Age: 27 Year
  Sex: Female

DRUGS (1)
  1. FERINJECT [Suspect]
     Active Substance: FERRIC CARBOXYMALTOSE
     Indication: Iron deficiency
     Dosage: 1 GM, 1 IN 1 TOTAL
     Route: 042
     Dates: start: 20200927, end: 20200927

REACTIONS (5)
  - Venous perforation [Not Recovered/Not Resolved]
  - Pain in extremity [Not Recovered/Not Resolved]
  - Infusion site oedema [Not Recovered/Not Resolved]
  - Infusion site discolouration [Not Recovered/Not Resolved]
  - Infusion site extravasation [Not Recovered/Not Resolved]

NARRATIVE: CASE EVENT DATE: 20200927
